FAERS Safety Report 5600378-7 (Version None)
Quarter: 2007Q4

REPORT INFORMATION
  Report Type: 
  Country: None (occurrence: None)
  Receive Date: 20071226
  Receipt Date: 20070411
  Transmission Date: 20080405
  Serious: No
  Sender: FDA-Public Use
  Company Number: 239443

PATIENT
  Age: 52 Year
  Sex: Female
  Weight: 72.6 kg

DRUGS (1)
  1. RAPTIVA [Suspect]
     Indication: PSORIASIS
     Dosage: 0.8 MG, INTRAMUSCULAR
     Route: 030
     Dates: start: 20061130, end: 20070325

REACTIONS (2)
  - ARTHRALGIA [None]
  - MALAISE [None]
